FAERS Safety Report 21650457 (Version 3)
Quarter: 2024Q3

REPORT INFORMATION
  Report Type: Spontaneous
  Country: US (occurrence: US)
  Receive Date: 20221128
  Receipt Date: 20240912
  Transmission Date: 20241017
  Serious: Yes (Other)
  Sender: PFIZER
  Company Number: US-PFIZER INC-PV202200109688

PATIENT
  Age: 61 Year
  Sex: Female

DRUGS (1)
  1. XELJANZ [Suspect]
     Active Substance: TOFACITINIB CITRATE
     Dosage: 5 MG

REACTIONS (6)
  - Dementia [Unknown]
  - Histoplasmosis [Unknown]
  - Amnesia [Not Recovered/Not Resolved]
  - Sensitivity to weather change [Unknown]
  - Anal incontinence [Unknown]
  - Alopecia [Unknown]
